FAERS Safety Report 8083508-X (Version None)
Quarter: 2012Q1

REPORT INFORMATION
  Report Type: 
  Country: None (occurrence: None)
  Receive Date: 20120127
  Receipt Date: 20110204
  Transmission Date: 20120608
  Serious: No
  Sender: FDA-Public Use
  Company Number: US-ABBOTT-11P-163-0702736-00

PATIENT
  Sex: Female
  Weight: 102.15 kg

DRUGS (3)
  1. HUMIRA [Suspect]
     Indication: RHEUMATOID ARTHRITIS
     Dates: start: 20100301
  2. FOLIC ACID [Concomitant]
     Indication: VITAMIN SUPPLEMENTATION
  3. METHOTREXATE [Concomitant]
     Indication: RHEUMATOID ARTHRITIS

REACTIONS (9)
  - LETHARGY [None]
  - DEVICE MALFUNCTION [None]
  - PAIN [None]
  - CHEST DISCOMFORT [None]
  - RHINORRHOEA [None]
  - NASAL CONGESTION [None]
  - NASOPHARYNGITIS [None]
  - SINUSITIS [None]
  - HEADACHE [None]
